FAERS Safety Report 22899340 (Version 2)
Quarter: 2023Q4

REPORT INFORMATION
  Report Type: Report from Study
  Country: BR (occurrence: BR)
  Receive Date: 20230904
  Receipt Date: 20231023
  Transmission Date: 20240110
  Serious: Yes (Other)
  Sender: FDA-Public Use
  Company Number: BR-NOVOPROD-1104024

PATIENT
  Age: 78 Month
  Sex: Male

DRUGS (5)
  1. INSULIN GLARGINE [Concomitant]
     Active Substance: INSULIN GLARGINE
     Indication: Type 1 diabetes mellitus
     Dosage: 7 IU, BID
     Dates: start: 2022
  2. FIASP [Suspect]
     Active Substance: INSULIN ASPART
     Dosage: UNK (NEW PEN)
  3. FIASP [Suspect]
     Active Substance: INSULIN ASPART
     Dosage: 2 IU WHICH WAS INCREASE OF 1UI
     Dates: start: 20230808
  4. FIASP [Suspect]
     Active Substance: INSULIN ASPART
     Dosage: 2 IU
     Dates: start: 20230807
  5. FIASP [Suspect]
     Active Substance: INSULIN ASPART
     Indication: Type 1 diabetes mellitus
     Dosage: 2 IU
     Dates: start: 2022

REACTIONS (3)
  - Blood glucose increased [Not Recovered/Not Resolved]
  - Device malfunction [Unknown]
  - Drug ineffective [Unknown]

NARRATIVE: CASE EVENT DATE: 20230807
